FAERS Safety Report 4423243-X (Version None)
Quarter: 2004Q3

REPORT INFORMATION
  Report Type: 
  Country: None (occurrence: None)
  Receive Date: 20040803
  Receipt Date: 20040722
  Transmission Date: 20050211
  Serious: Yes (Life-Threatening, Hospitalization)
  Sender: FDA-Public Use
  Company Number: 2004-02526

PATIENT
  Age: 70 Year
  Sex: Male

DRUGS (1)
  1. BCG THERAPEUTICS [Suspect]
     Indication: BLADDER CANCER
     Dosage: I.VES.
     Route: 043

REACTIONS (8)
  - GENERAL PHYSICAL HEALTH DETERIORATION [None]
  - HEPATITIS GRANULOMATOUS [None]
  - LEUKOPENIA [None]
  - PROCEDURAL COMPLICATION [None]
  - RED BLOOD CELL SEDIMENTATION RATE INCREASED [None]
  - SEPSIS [None]
  - TUBERCULOSIS [None]
  - URINARY TRACT INFECTION [None]
